FAERS Safety Report 7740045-7 (Version None)
Quarter: 2011Q3

REPORT INFORMATION
  Report Type: 
  Country: None (occurrence: None)
  Receive Date: 20110909
  Receipt Date: 20110331
  Transmission Date: 20111222
  Serious: No
  Sender: FDA-Public Use
  Company Number: US-BAYER-2011-028406

PATIENT
  Sex: Female

DRUGS (1)
  1. MIRENA [Suspect]
     Dosage: 20 ?G/D, CONT
     Dates: start: 20080301

REACTIONS (3)
  - HYPOMENORRHOEA [None]
  - COITAL BLEEDING [None]
  - MEDICAL DEVICE COMPLICATION [None]
